FAERS Safety Report 18870959 (Version 1)
Quarter: 2021Q1

REPORT INFORMATION
  Report Type: Spontaneous
  Country: US (occurrence: US)
  Receive Date: 20210210
  Receipt Date: 20210210
  Transmission Date: 20210420
  Serious: No
  Sender: FDA-Public Use
  Company Number: US-QILU PHARMACEUTICAL CO.LTD.-QLU-000301-2020

PATIENT
  Sex: Female

DRUGS (2)
  1. LIDOCAINE. [Suspect]
     Active Substance: LIDOCAINE
     Indication: UPPER RESPIRATORY TRACT INFECTION
     Dosage: 0.5 CUBIC CENTIMETRE
     Route: 030
     Dates: start: 20201208, end: 20201208
  2. CEFAZOLIN [Suspect]
     Active Substance: CEFAZOLIN
     Indication: UPPER RESPIRATORY TRACT INFECTION
     Dosage: 1 DOSAGE/SHOT, ONCE
     Route: 030
     Dates: start: 20201208, end: 20201208

REACTIONS (3)
  - Injection site pain [Not Recovered/Not Resolved]
  - Panic attack [Recovered/Resolved]
  - Chest pain [Recovered/Resolved]

NARRATIVE: CASE EVENT DATE: 20201208
